FAERS Safety Report 10161829 (Version 1)
Quarter: 2014Q2

REPORT INFORMATION
  Report Type: Spontaneous
  Country: US (occurrence: None)
  Receive Date: 20140508
  Receipt Date: 20140508
  Transmission Date: 20141212
  Serious: Yes (Death, Hospitalization)
  Sender: FDA-Public Use
  Company Number: None

PATIENT
  Age: 16 Year
  Sex: Male
  Weight: 59 kg

DRUGS (6)
  1. BUSULFAN [Suspect]
  2. CYCLOPHOSPHAMIDE [Suspect]
  3. CYCLOSPORINE [Suspect]
  4. LYMPHOCYTE IMMUNE GLOBULIN [Suspect]
  5. MESNA [Suspect]
  6. METHOTREXATE [Suspect]

REACTIONS (11)
  - Nausea [None]
  - Vomiting [None]
  - Diarrhoea [None]
  - Multi-organ failure [None]
  - Systemic candida [None]
  - Graft versus host disease [None]
  - Cytomegalovirus infection [None]
  - Hypotension [None]
  - Pneumomediastinum [None]
  - Cardiac arrest [None]
  - Acidosis [None]
